FAERS Safety Report 14160036 (Version 2)
Quarter: 2017Q4

REPORT INFORMATION
  Report Type: Spontaneous
  Country: US (occurrence: US)
  Receive Date: 20171103
  Receipt Date: 20171122
  Transmission Date: 20180321
  Serious: Yes (Hospitalization, Other)
  Sender: FDA-Public Use
  Company Number: US-IMPAX LABORATORIES, INC-2017-IPXL-03072

PATIENT
  Age: 61 Year
  Sex: Male

DRUGS (1)
  1. RYTARY [Suspect]
     Active Substance: CARBIDOPA\LEVODOPA
     Indication: PRODUCT USED FOR UNKNOWN INDICATION
     Dosage: 61.25/245 MG, 21 CAPSULES FOR 7 DAYS
     Route: 048

REACTIONS (4)
  - Localised infection [Unknown]
  - Gait inability [Unknown]
  - Cardiac pacemaker insertion [Unknown]
  - Prescribed overdose [Unknown]
